FAERS Safety Report 5356207-2 (Version None)
Quarter: 2007Q2

REPORT INFORMATION
  Report Type: 
  Country: None (occurrence: None)
  Receive Date: 20070613
  Receipt Date: 20070604
  Transmission Date: 20071010
  Serious: Yes (Hospitalization)
  Sender: FDA-Public Use
  Company Number: IT-ELI_LILLY_AND_COMPANY-IT200705002979

PATIENT
  Age: 47 Year
  Sex: Female

DRUGS (4)
  1. GEMZAR [Suspect]
     Indication: LUNG NEOPLASM MALIGNANT
     Dosage: 1 G, OTHER
     Route: 042
     Dates: start: 20070101, end: 20070424
  2. LASIX [Concomitant]
     Dosage: 1 D/F, UNK
  3. LYRICA [Concomitant]
  4. DURAGESIC-100 [Concomitant]
     Dosage: 100 UG, UNK

REACTIONS (1)
  - TOXIC EPIDERMAL NECROLYSIS [None]
